FAERS Safety Report 13274391 (Version 2)
Quarter: 2017Q2

REPORT INFORMATION
  Report Type: Spontaneous
  Country: US (occurrence: US)
  Receive Date: 20170227
  Receipt Date: 20170414
  Transmission Date: 20170830
  Serious: No
  Sender: FDA-Public Use
  Company Number: US-ALLERGAN-1706677US

PATIENT
  Age: 64 Year
  Sex: Female

DRUGS (5)
  1. NAMENDA [Suspect]
     Active Substance: MEMANTINE HYDROCHLORIDE
     Dosage: 21 MG, QD
     Route: 048
     Dates: start: 201702, end: 201702
  2. NAMENDA [Suspect]
     Active Substance: MEMANTINE HYDROCHLORIDE
     Dosage: 28 MG, QD
     Route: 048
     Dates: start: 201702, end: 201702
  3. ARICEPT [Concomitant]
     Active Substance: DONEPEZIL HYDROCHLORIDE
     Indication: DEMENTIA
     Dosage: UNK
     Route: 048
  4. NAMENDA [Suspect]
     Active Substance: MEMANTINE HYDROCHLORIDE
     Indication: DEMENTIA
     Dosage: 14 MG, QD
     Route: 048
     Dates: start: 201701, end: 201701
  5. NAMENDA [Suspect]
     Active Substance: MEMANTINE HYDROCHLORIDE
     Dosage: 7 MG, QD
     Route: 048
     Dates: start: 201701, end: 201701

REACTIONS (5)
  - Nightmare [Recovered/Resolved]
  - Influenza like illness [Recovered/Resolved]
  - Somnolence [Recovered/Resolved]
  - Nausea [Recovered/Resolved]
  - Myalgia [Recovered/Resolved]
